FAERS Safety Report 8766125 (Version 2)
Quarter: 2013Q2

REPORT INFORMATION
  Report Type: Report from Study
  Country: JP (occurrence: JP)
  Receive Date: 20120904
  Receipt Date: 20130408
  Transmission Date: 20140414
  Serious: Yes (Hospitalization, Other)
  Sender: FDA-Public Use
  Company Number: JP-009507513-1208JPN010264

PATIENT
  Sex: Female
  Weight: 50 kg

DRUGS (7)
  1. PEGINTRON [Suspect]
     Indication: CHRONIC HEPATITIS C
     Dosage: 1.6 MICROGRAM PER KILOGRAM, QW
     Route: 058
     Dates: start: 20120605, end: 20120627
  2. PEGINTRON [Suspect]
     Dosage: 1.0 MICROGRAM PER KILOGRAM, QW
     Route: 058
     Dates: start: 20120704, end: 20120813
  3. REBETOL [Suspect]
     Indication: CHRONIC HEPATITIS C
     Dosage: 400 MG, QD
     Route: 048
     Dates: start: 20120605, end: 20120703
  4. REBETOL [Suspect]
     Dosage: 200 MG, QD
     Route: 048
     Dates: start: 20120704, end: 20120813
  5. TELAVIC [Suspect]
     Indication: CHRONIC HEPATITIS C
     Dosage: 1500 MG, QD
     Route: 048
     Dates: start: 20120605, end: 20120813
  6. RESPLEN [Concomitant]
     Indication: COUGH
     Dosage: 60 MG, QD
     Route: 048
     Dates: start: 20120711, end: 20120813
  7. MUCODYNE [Concomitant]
     Indication: COUGH
     Dosage: 1500 MG, QD
     Route: 048
     Dates: start: 20120711, end: 20120813

REACTIONS (2)
  - Erythema multiforme [Recovered/Resolved]
  - White blood cell count decreased [Recovering/Resolving]
